FAERS Safety Report 12139383 (Version 1)
Quarter: 2016Q1

REPORT INFORMATION
  Report Type: Report from Study
  Country: FR (occurrence: FR)
  Receive Date: 20160303
  Receipt Date: 20160303
  Transmission Date: 20160526
  Serious: Yes (Hospitalization)
  Sender: FDA-Public Use
  Company Number: FR-BIOGEN-2014BI020929

PATIENT
  Age: 50 Year
  Sex: Male
  Weight: 54 kg

DRUGS (2)
  1. VESICARE [Concomitant]
     Active Substance: SOLIFENACIN SUCCINATE
  2. FAMPYRA [Suspect]
     Active Substance: DALFAMPRIDINE
     Indication: GAIT DISTURBANCE
     Route: 048
     Dates: start: 20130704, end: 20130707

REACTIONS (1)
  - Paraplegia [Recovered/Resolved with Sequelae]

NARRATIVE: CASE EVENT DATE: 20130723
